FAERS Safety Report 25742662 (Version 2)
Quarter: 2025Q3

REPORT INFORMATION
  Report Type: Spontaneous
  Country: EU (occurrence: EU)
  Receive Date: 20250830
  Receipt Date: 20250917
  Transmission Date: 20251021
  Serious: Yes (Hospitalization, Other)
  Sender: CELLTRION
  Company Number: None

PATIENT

DRUGS (11)
  1. RITUXIMAB [Suspect]
     Active Substance: RITUXIMAB
     Indication: Waldenstrom^s macroglobulinaemia
     Route: 042
     Dates: start: 20250722, end: 20250722
  2. BENDAMUSTINE [Suspect]
     Active Substance: BENDAMUSTINE
     Indication: Waldenstrom^s macroglobulinaemia
     Route: 042
     Dates: start: 20250722, end: 20250723
  3. AUGMENTIN XR [Suspect]
     Active Substance: AMOXICILLIN\CLAVULANATE POTASSIUM
     Indication: Pyrexia
     Route: 048
     Dates: start: 20250802, end: 20250804
  4. OFLOXACIN [Suspect]
     Active Substance: OFLOXACIN
     Indication: Pyrexia
     Route: 048
     Dates: start: 20250802, end: 20250803
  5. LENOGRASTIM [Suspect]
     Active Substance: LENOGRASTIM
     Indication: Pyrexia
     Route: 058
     Dates: start: 20250729, end: 20250802
  6. VALACYCLOVIR HYDROCHLORIDE [Concomitant]
     Active Substance: VALACYCLOVIR HYDROCHLORIDE
     Route: 048
     Dates: start: 20250722
  7. BACTRIM [Concomitant]
     Active Substance: SULFAMETHOXAZOLE\TRIMETHOPRIM
     Dosage: 3 DF, 1/WEEK
     Route: 048
     Dates: start: 20250723
  8. ONDANSETRON [Concomitant]
     Active Substance: ONDANSETRON
     Route: 048
     Dates: start: 20250722, end: 20250723
  9. ACETAMINOPHEN [Concomitant]
     Active Substance: ACETAMINOPHEN
     Route: 048
     Dates: start: 20250802, end: 20250803
  10. SOLU-MEDROL [Concomitant]
     Active Substance: METHYLPREDNISOLONE SODIUM SUCCINATE
     Route: 042
     Dates: start: 20250722, end: 20250723
  11. POLARAMINE [Concomitant]
     Active Substance: DEXCHLORPHENIRAMINE MALEATE
     Route: 042
     Dates: start: 20250722, end: 20250723

REACTIONS (5)
  - Hepatitis [Recovering/Resolving]
  - Acute kidney injury [Recovered/Resolved]
  - Pancytopenia [Recovered/Resolved]
  - Pyrexia [Recovered/Resolved]
  - Intentional product use issue [Unknown]

NARRATIVE: CASE EVENT DATE: 20250802
